FAERS Safety Report 24624010 (Version 1)
Quarter: 2024Q4

REPORT INFORMATION
  Report Type: Spontaneous
  Country: TR (occurrence: TR)
  Receive Date: 20241115
  Receipt Date: 20241115
  Transmission Date: 20250115
  Serious: Yes (Other)
  Sender: ALKEM
  Company Number: TR-ALKEM LABORATORIES LIMITED-TR-ALKEM-2024-20865

PATIENT
  Age: 6 Year
  Sex: Male
  Weight: 26 kg

DRUGS (6)
  1. METHYLPHENIDATE HYDROCHLORIDE [Suspect]
     Active Substance: METHYLPHENIDATE HYDROCHLORIDE
     Indication: Attention deficit hyperactivity disorder
     Dosage: IMMEDIATE RELEASE FORM
     Route: 065
  2. METHYLPHENIDATE HYDROCHLORIDE [Suspect]
     Active Substance: METHYLPHENIDATE HYDROCHLORIDE
     Dosage: 5 MILLIGRAM, BID
     Route: 065
  3. METHYLPHENIDATE HYDROCHLORIDE [Suspect]
     Active Substance: METHYLPHENIDATE HYDROCHLORIDE
     Dosage: 10 MILLIGRAM, TID, ADMINISTRATION RITUALS WERE REPORTED AS ^1ST DOSE AT 08:00^, ^2ND DOSE AT 13:00^,
     Route: 065
  4. METHYLPHENIDATE HYDROCHLORIDE [Suspect]
     Active Substance: METHYLPHENIDATE HYDROCHLORIDE
     Dosage: 18 MILLIGRAM, OD
     Route: 065
  5. GUANFACINE [Concomitant]
     Active Substance: GUANFACINE
     Indication: Attention deficit hyperactivity disorder
     Dosage: 3 MILLIGRAM, QD
     Route: 065
  6. GUANFACINE [Concomitant]
     Active Substance: GUANFACINE
     Dosage: 3 MILLIGRAM, IN THE EVENING OF THAT DAY
     Route: 065

REACTIONS (5)
  - Dystonia [Unknown]
  - Drug withdrawal syndrome [Unknown]
  - Rebound effect [Unknown]
  - Treatment noncompliance [Unknown]
  - Disease recurrence [Unknown]
